FAERS Safety Report 11940612 (Version 1)
Quarter: 2016Q1

REPORT INFORMATION
  Report Type: Spontaneous
  Country: US (occurrence: US)
  Receive Date: 20160122
  Receipt Date: 20160122
  Transmission Date: 20160526
  Serious: No
  Sender: FDA-Public Use
  Company Number: US-AKRON, INC.-1046793

PATIENT
  Sex: Female

DRUGS (1)
  1. CLOBETASOL PROPIONATE TOPICAL SOLUTION [Suspect]
     Active Substance: CLOBETASOL PROPIONATE

REACTIONS (2)
  - Discomfort [Unknown]
  - Paraesthesia [Unknown]
